FAERS Safety Report 13438003 (Version 1)
Quarter: 2017Q2

REPORT INFORMATION
  Report Type: Spontaneous
  Country: US (occurrence: US)
  Receive Date: 20170413
  Receipt Date: 20170413
  Transmission Date: 20170830
  Serious: Yes (Other)
  Sender: FDA-Public Use
  Company Number: US-AMGEN-USASP2017054029

PATIENT
  Age: 55 Year
  Sex: Female

DRUGS (1)
  1. REPATHA [Suspect]
     Active Substance: EVOLOCUMAB
     Indication: HYPERCHOLESTEROLAEMIA
     Dosage: 140 MG, Q2WK (TWICE A MONTH)
     Route: 065
     Dates: start: 201509, end: 201611

REACTIONS (6)
  - Low density lipoprotein increased [Unknown]
  - Vascular procedure complication [Unknown]
  - Drug dose omission [Unknown]
  - Thrombosis [Unknown]
  - Coronary artery occlusion [Unknown]
  - Atrial fibrillation [Unknown]

NARRATIVE: CASE EVENT DATE: 201611
